FAERS Safety Report 16532221 (Version 3)
Quarter: 2019Q3

REPORT INFORMATION
  Report Type: Spontaneous
  Country: DE (occurrence: DE)
  Receive Date: 20190705
  Receipt Date: 20190821
  Transmission Date: 20191004
  Serious: Yes (Hospitalization)
  Sender: FDA-Public Use
  Company Number: DE-ANIPHARMA-2019-DE-000091

PATIENT
  Age: 81 Year
  Sex: Female
  Weight: 69 kg

DRUGS (11)
  1. BELOC-ZOK [Suspect]
     Active Substance: METOPROLOL SUCCINATE
     Dosage: 95 MG BID
     Route: 048
     Dates: start: 201010
  2. CLOPIDOGREL [Concomitant]
     Active Substance: CLOPIDOGREL BISULFATE
     Dosage: UNKNOWN
     Route: 065
  3. ATACAND [Suspect]
     Active Substance: CANDESARTAN CILEXETIL
     Indication: PRODUCT USED FOR UNKNOWN INDICATION
     Dosage: 16 MG BID / 32 MG BID
     Route: 048
     Dates: start: 20181212
  4. VALSARTAN AND HYDROCHLOROTHIAZIDE [Concomitant]
     Active Substance: HYDROCHLOROTHIAZIDE\VALSARTAN
     Dosage: 160/12.5
     Route: 065
     Dates: end: 201710
  5. AMLODIPIN [Concomitant]
     Active Substance: AMLODIPINE BESYLATE
     Dosage: UNKNOWN
     Route: 065
  6. METOHEXAL SUCC [Concomitant]
     Active Substance: METOPROLOL SUCCINATE
     Dosage: UNKNOWN
     Route: 065
  7. DIOVAN [Concomitant]
     Active Substance: VALSARTAN
     Dosage: UNKNOWN
     Route: 065
     Dates: start: 20120201, end: 201604
  8. CLYNOL [Concomitant]
     Dosage: UNKNOWN
     Route: 065
  9. CANDESARTAN CILEXETIL AND HYDROCHLOROTHIAZIDE [Suspect]
     Active Substance: CANDESARTAN CILEXETIL\HYDROCHLOROTHIAZIDE
     Indication: PRODUCT USED FOR UNKNOWN INDICATION
     Dosage: 16/12.5, TWO TIMES A DAY
     Route: 048
     Dates: start: 20090707, end: 20120131
  10. MOXONIDINE [Concomitant]
     Active Substance: MOXONIDINE
     Dosage: UNKNOWN
     Route: 065
  11. TORASEMIDE [Concomitant]
     Active Substance: TORSEMIDE
     Dosage: UNKNOWN
     Route: 065

REACTIONS (17)
  - Aortic valve incompetence [Recovered/Resolved]
  - Bundle branch block left [Recovered/Resolved]
  - Contusion [Recovered/Resolved with Sequelae]
  - Joint swelling [Recovered/Resolved]
  - Abdominal pain upper [Recovered/Resolved]
  - Alopecia [Recovered/Resolved]
  - Rash [Recovered/Resolved]
  - Atrioventricular block [Recovered/Resolved]
  - Skin disorder [Recovered/Resolved]
  - Oedema peripheral [Recovered/Resolved]
  - Ejection fraction decreased [Recovered/Resolved]
  - Arteriosclerosis coronary artery [Recovered/Resolved]
  - Hypertension [Recovered/Resolved]
  - Cardiac valve disease [Recovered/Resolved]
  - Pulmonary hypertension [Recovered/Resolved]
  - Gastrointestinal disorder [Recovered/Resolved]
  - Renal disorder [Recovered/Resolved]

NARRATIVE: CASE EVENT DATE: 2010
